FAERS Safety Report 9644501 (Version 3)
Quarter: 2014Q1

REPORT INFORMATION
  Report Type: Spontaneous
  Country: IT (occurrence: IT)
  Receive Date: 20131025
  Receipt Date: 20140228
  Transmission Date: 20141002
  Serious: Yes (Other)
  Sender: FDA-Public Use
  Company Number: IT-ACCORD-020055

PATIENT
  Age: 36 Year
  Sex: Male

DRUGS (2)
  1. LORAZEPAM [Concomitant]
  2. QUETIAPINE [Suspect]
     Dates: start: 20131002, end: 20131002

REACTIONS (4)
  - Tachycardia [Recovered/Resolved]
  - Sopor [Recovered/Resolved]
  - Drug abuse [Unknown]
  - Intentional overdose [Unknown]
